FAERS Safety Report 5692717-6 (Version None)
Quarter: 2008Q2

REPORT INFORMATION
  Report Type: 
  Country: None (occurrence: None)
  Receive Date: 20080401
  Receipt Date: 20080324
  Transmission Date: 20081010
  Serious: Yes (Hospitalization)
  Sender: FDA-Public Use
  Company Number: APP200800215

PATIENT
  Age: 52 Year
  Sex: Male
  Weight: 87.27 kg

DRUGS (2)
  1. NEBUPENT [Suspect]
     Indication: DRUG USE FOR UNKNOWN INDICATION
     Dosage: INHALATION
     Route: 055
     Dates: start: 20080229
  2. TEMOZOLOMIDE [Suspect]
     Indication: GLIOBLASTOMA MULTIFORME
     Dosage: 75 MG/M2, DAYS 1-21 EVERY 28 DAYS, ORAL
     Route: 048
     Dates: start: 20080218

REACTIONS (7)
  - ASTHENIA [None]
  - CHILLS [None]
  - CONDITION AGGRAVATED [None]
  - CONFUSIONAL STATE [None]
  - GAIT DISTURBANCE [None]
  - MUSCULAR WEAKNESS [None]
  - PANCREATITIS [None]
